FAERS Safety Report 6292197-6 (Version None)
Quarter: 2009Q3

REPORT INFORMATION
  Report Type: 
  Country: None (occurrence: None)
  Receive Date: 20090730
  Receipt Date: 20090730
  Transmission Date: 20100115
  Serious: No
  Sender: FDA-Public Use
  Company Number: None

PATIENT
  Age: 43 Year
  Sex: Female
  Weight: 102.0593 kg

DRUGS (1)
  1. BUPROPION HCL [Suspect]
     Indication: DEPRESSION
     Dosage: 150 MG 2 TAB ONCE DAILY ORAL
     Route: 048
     Dates: start: 20090716

REACTIONS (2)
  - PALPITATIONS [None]
  - PRODUCT SUBSTITUTION ISSUE [None]
